FAERS Safety Report 14830395 (Version 1)
Quarter: 2018Q2

REPORT INFORMATION
  Report Type: Spontaneous
  Country: US (occurrence: US)
  Receive Date: 20180430
  Receipt Date: 20180430
  Transmission Date: 20180711
  Serious: No
  Sender: FDA-Public Use
  Company Number: US-SA-2018SA058750

PATIENT
  Age: 55 Year
  Sex: Female

DRUGS (8)
  1. PRALUENT [Suspect]
     Active Substance: ALIROCUMAB
     Indication: MULTIPLE SCLEROSIS
     Dosage: DOSE:150 MILLIGRAM(S)/MILLILITRE
     Route: 058
     Dates: start: 20160929
  2. PRALUENT [Suspect]
     Active Substance: ALIROCUMAB
     Indication: MULTIPLE SCLEROSIS
     Dosage: DOSE:150 MILLIGRAM(S)/MILLILITRE
     Route: 058
     Dates: start: 20160929
  3. PRALUENT [Suspect]
     Active Substance: ALIROCUMAB
     Indication: TYPE 1 DIABETES MELLITUS
     Dosage: DOSE:150 MILLIGRAM(S)/MILLILITRE
     Route: 058
     Dates: start: 20160929
  4. PRALUENT [Suspect]
     Active Substance: ALIROCUMAB
     Indication: TYPE 1 DIABETES MELLITUS
     Dosage: DOSE:150 MILLIGRAM(S)/MILLILITRE
     Route: 058
     Dates: start: 20160929
  5. ALIROCUMAB PREFILLED PEN [Suspect]
     Active Substance: ALIROCUMAB
     Indication: MULTIPLE SCLEROSIS
     Dates: start: 20160929
  6. ALIROCUMAB PREFILLED PEN [Suspect]
     Active Substance: ALIROCUMAB
     Indication: MULTIPLE SCLEROSIS
     Dates: start: 20160929
  7. ALIROCUMAB PREFILLED PEN [Suspect]
     Active Substance: ALIROCUMAB
     Indication: TYPE 1 DIABETES MELLITUS
     Dates: start: 20160929
  8. ALIROCUMAB PREFILLED PEN [Suspect]
     Active Substance: ALIROCUMAB
     Indication: TYPE 1 DIABETES MELLITUS
     Dates: start: 20160929

REACTIONS (3)
  - Product use in unapproved indication [Unknown]
  - Alopecia [Unknown]
  - Headache [Unknown]

NARRATIVE: CASE EVENT DATE: 201801
